FAERS Safety Report 19367775 (Version 1)
Quarter: 2021Q2

REPORT INFORMATION
  Report Type: Spontaneous
  Country: US (occurrence: US)
  Receive Date: 20210602
  Receipt Date: 20210602
  Transmission Date: 20210717
  Serious: No
  Sender: FDA-Public Use
  Company Number: US-ROCHE-2619499

PATIENT
  Age: 30 Year
  Sex: Female

DRUGS (2)
  1. OCREVUS [Suspect]
     Active Substance: OCRELIZUMAB
     Indication: RELAPSING-REMITTING MULTIPLE SCLEROSIS
     Dosage: RECEIVED TWO 300 MG DOSES, ONGOING: NO
     Route: 042
     Dates: start: 201912
  2. OCREVUS [Suspect]
     Active Substance: OCRELIZUMAB
     Dosage: ONGOING YES
     Route: 042
     Dates: start: 20200605

REACTIONS (2)
  - Eating disorder [Unknown]
  - B-lymphocyte count increased [Unknown]

NARRATIVE: CASE EVENT DATE: 20200605
